FAERS Safety Report 13477451 (Version 1)
Quarter: 2017Q2

REPORT INFORMATION
  Report Type: Other
  Country: FR (occurrence: FR)
  Receive Date: 20170425
  Receipt Date: 20170425
  Transmission Date: 20170830
  Serious: Yes (Other)
  Sender: FDA-Public Use
  Company Number: FR-RARE DISEASE THERAPEUTICS, INC.-1065849

PATIENT
  Age: 24 Month
  Sex: Female
  Weight: 12.5 kg

DRUGS (1)
  1. PURIXAN [Suspect]
     Active Substance: MERCAPTOPURINE
     Indication: ACUTE LYMPHOCYTIC LEUKAEMIA
     Route: 048
     Dates: start: 20170322, end: 20170322

REACTIONS (2)
  - Accidental overdose [None]
  - Hepatocellular injury [Unknown]

NARRATIVE: CASE EVENT DATE: 20170322
